FAERS Safety Report 9792931 (Version 1)
Quarter: 2014Q1

REPORT INFORMATION
  Report Type: Spontaneous
  Country: US (occurrence: US)
  Receive Date: 20140102
  Receipt Date: 20140102
  Transmission Date: 20141002
  Serious: No
  Sender: FDA-Public Use
  Company Number: US-SA-2013SA130194

PATIENT
  Sex: Female

DRUGS (1)
  1. AUBAGIO [Suspect]
     Indication: PRODUCT USED FOR UNKNOWN INDICATION
     Route: 065

REACTIONS (7)
  - Speech disorder [Unknown]
  - Feeling abnormal [Unknown]
  - Memory impairment [Unknown]
  - Disturbance in attention [Unknown]
  - Muscular weakness [Unknown]
  - Muscular weakness [Unknown]
  - Alopecia [Unknown]
